FAERS Safety Report 7369503-4 (Version None)
Quarter: 2011Q1

REPORT INFORMATION
  Report Type: 
  Country: None (occurrence: None)
  Receive Date: 20110323
  Receipt Date: 20110316
  Transmission Date: 20110831
  Serious: Yes (Hospitalization, Other)
  Sender: FDA-Public Use
  Company Number: US-AMGEN-USASP2011014490

PATIENT
  Age: 60 Year
  Sex: Male

DRUGS (1)
  1. ENBREL [Suspect]
     Indication: PSORIASIS
     Dates: end: 20110307

REACTIONS (5)
  - HYPOAESTHESIA [None]
  - CONVULSION [None]
  - PARAESTHESIA [None]
  - LUNG INFECTION [None]
  - LIMB INJURY [None]
